FAERS Safety Report 5114667-6 (Version None)
Quarter: 2006Q3

REPORT INFORMATION
  Report Type: 
  Country: None (occurrence: None)
  Receive Date: 20060926
  Receipt Date: 20060914
  Transmission Date: 20061208
  Serious: Yes (Death, Other)
  Sender: FDA-Public Use
  Company Number: US-JNJFOC-20050701651

PATIENT
  Sex: Female
  Weight: 68.49 kg

DRUGS (9)
  1. REMICADE [Suspect]
     Indication: RHEUMATOID ARTHRITIS
     Route: 042
  2. NEXIUM [Concomitant]
  3. FOSAMAX [Concomitant]
  4. PRAVACHOL [Concomitant]
  5. METOPROLOL [Concomitant]
  6. WARFARIN SODIUM [Concomitant]
  7. FUROSEMIDE [Concomitant]
  8. ACTOS [Concomitant]
  9. CALCIUM +D [Concomitant]

REACTIONS (5)
  - ARTERIOSCLEROSIS CORONARY ARTERY [None]
  - CUTANEOUS LUPUS ERYTHEMATOSUS [None]
  - MYOCARDIAL ISCHAEMIA [None]
  - PANCREATIC CARCINOMA [None]
  - RHEUMATOID ARTHRITIS [None]
